FAERS Safety Report 20058850 (Version 2)
Quarter: 2022Q1

REPORT INFORMATION
  Report Type: Report from Study
  Country: US (occurrence: US)
  Receive Date: 20211111
  Receipt Date: 20220221
  Transmission Date: 20220423
  Serious: Yes (Hospitalization, Other)
  Sender: FDA-Public Use
  Company Number: US-TAKEDA-US201840661

PATIENT
  Age: 56 Year
  Sex: Female

DRUGS (2)
  1. CUVITRU [Suspect]
     Active Substance: HUMAN IMMUNOGLOBULIN G
     Indication: Primary immunodeficiency syndrome
     Route: 065
  2. COVID-19 VACCINE NOS [Suspect]
     Active Substance: COVID-19 VACCINE NOS
     Indication: Immunisation
     Route: 065

REACTIONS (12)
  - Hospitalisation [Unknown]
  - Migraine [Unknown]
  - Ear pain [Unknown]
  - Migrainous infarction [Unknown]
  - Vaccination complication [Unknown]
  - COVID-19 immunisation [Unknown]
  - Irritable bowel syndrome [Unknown]
  - Cough [Recovering/Resolving]
  - Infusion site bruising [Unknown]
  - Pyrexia [Unknown]
  - Chills [Unknown]
  - Pain [Unknown]

NARRATIVE: CASE EVENT DATE: 20210101
